FAERS Safety Report 11075314 (Version 2)
Quarter: 2015Q2

REPORT INFORMATION
  Report Type: Spontaneous
  Country: BE (occurrence: BE)
  Receive Date: 20150429
  Receipt Date: 20150521
  Transmission Date: 20150821
  Serious: Yes (Other)
  Sender: FDA-Public Use
  Company Number: BE-WATSON-2015-08625

PATIENT
  Sex: Female

DRUGS (1)
  1. LEVONORGESTREL (UNKNOWN) [Suspect]
     Active Substance: LEVONORGESTREL
     Indication: MENORRHAGIA
     Dosage: UNK
     Route: 015
     Dates: start: 201412, end: 20150409

REACTIONS (2)
  - Bacteroides infection [Recovered/Resolved]
  - Pelvic inflammatory disease [Recovered/Resolved]
